FAERS Safety Report 17802549 (Version 1)
Quarter: 2020Q2

REPORT INFORMATION
  Report Type: Spontaneous
  Country: US (occurrence: US)
  Receive Date: 20200519
  Receipt Date: 20200519
  Transmission Date: 20200714
  Serious: No
  Sender: FDA-Public Use
  Company Number: US-ELI_LILLY_AND_COMPANY-US202005002426

PATIENT
  Age: 53 Year
  Sex: Female

DRUGS (3)
  1. BASAGLAR [Suspect]
     Active Substance: INSULIN GLARGINE
     Indication: TYPE 2 DIABETES MELLITUS
     Dosage: 30 U, DAILY, INCREASE 2 U AS NEEDED
     Route: 058
  2. TRULICITY [Suspect]
     Active Substance: DULAGLUTIDE
     Indication: TYPE 2 DIABETES MELLITUS
     Dosage: 1.5 MG, UNKNOWN
     Route: 058
  3. METFORMIN [Concomitant]
     Active Substance: METFORMIN HYDROCHLORIDE
     Indication: TYPE 2 DIABETES MELLITUS

REACTIONS (7)
  - Blood glucose abnormal [Unknown]
  - Drug ineffective [Unknown]
  - Thirst [Recovering/Resolving]
  - Hypoaesthesia [Recovering/Resolving]
  - Skin discolouration [Recovering/Resolving]
  - Glycosylated haemoglobin increased [Unknown]
  - Wrong patient received product [Unknown]

NARRATIVE: CASE EVENT DATE: 202004
